FAERS Safety Report 18518397 (Version 1)
Quarter: 2020Q4

REPORT INFORMATION
  Report Type: Spontaneous
  Country: DE (occurrence: DE)
  Receive Date: 20201118
  Receipt Date: 20201118
  Transmission Date: 20210114
  Serious: Yes (Other)
  Sender: FDA-Public Use
  Company Number: NVSC2020DE303998

PATIENT
  Age: 70 Year
  Sex: Male

DRUGS (1)
  1. METOPROLOLSUCCINAT - 1 A PHARMA [Suspect]
     Active Substance: METOPROLOL SUCCINATE
     Indication: PRODUCT USED FOR UNKNOWN INDICATION
     Dosage: UNK, BID
     Route: 065

REACTIONS (2)
  - Glaucoma [Unknown]
  - Peripheral coldness [Unknown]

NARRATIVE: CASE EVENT DATE: 20201109
